FAERS Safety Report 14546540 (Version 2)
Quarter: 2018Q1

REPORT INFORMATION
  Report Type: Spontaneous
  Country: JP (occurrence: JP)
  Receive Date: 20180219
  Receipt Date: 20180223
  Transmission Date: 20180509
  Serious: Yes (Death, Other)
  Sender: FDA-Public Use
  Company Number: JP-BAYER-2017-145463

PATIENT
  Age: 71 Year
  Sex: Male
  Weight: 67.2 kg

DRUGS (9)
  1. STIVARGA [Suspect]
     Active Substance: REGORAFENIB
     Indication: HEPATOCELLULAR CARCINOMA
     Dosage: 160 MG, QD, 3 WEEKS ON, 1 WEEK OFF
     Route: 048
     Dates: start: 20170713, end: 20170720
  2. LIVACT [Concomitant]
     Active Substance: AMINO ACIDS
     Dosage: 3PACKS
  3. FUMARATE DISODIUM [Concomitant]
     Active Substance: DISODIUM FUMARATE
     Dosage: DAILY DOSE 10 MG
  4. DOXAZOSIN [Concomitant]
     Active Substance: DOXAZOSIN\DOXAZOSIN MESYLATE
     Dosage: DAILY DOSE 4 MG
  5. ADALAT CC [Suspect]
     Active Substance: NIFEDIPINE
     Dosage: DAILY DOSE 40 MG
  6. PRAVASTATIN. [Concomitant]
     Active Substance: PRAVASTATIN
     Dosage: DAILY DOSE 10 MG
  7. AZILSARTAN [Concomitant]
     Active Substance: AZILSARTAN KAMEDOXOMIL
     Dosage: DAILY DOSE 20 MG
  8. URSODEOXYCHOLIC ACID [Concomitant]
     Active Substance: URSODIOL
     Dosage: DAILY DOSE 300 MG
  9. AMINOLEBAN [Concomitant]
     Active Substance: AMINO ACIDS
     Dosage: 3PACKS

REACTIONS (6)
  - Palmar-plantar erythrodysaesthesia syndrome [Recovered/Resolved]
  - Malaise [Recovered/Resolved]
  - Aspartate aminotransferase increased [None]
  - Drug-induced liver injury [Recovered/Resolved]
  - Hepatic cancer [Fatal]
  - Pyrexia [Recovered/Resolved]

NARRATIVE: CASE EVENT DATE: 20170717
